FAERS Safety Report 9463897 (Version 1)
Quarter: 2013Q3

REPORT INFORMATION
  Report Type: Spontaneous
  Country: US (occurrence: US)
  Receive Date: 20130819
  Receipt Date: 20130819
  Transmission Date: 20140515
  Serious: No
  Sender: FDA-Public Use
  Company Number: US-JNJFOC-20130803022

PATIENT
  Age: 41 Year
  Sex: Female
  Weight: 81.65 kg

DRUGS (4)
  1. DURAGESIC [Suspect]
     Indication: HEAD INJURY
     Route: 062
     Dates: start: 2011, end: 201307
  2. DURAGESIC [Suspect]
     Indication: HEAD INJURY
     Route: 062
     Dates: start: 201307
  3. DURAGESIC [Suspect]
     Indication: BACK INJURY
     Route: 062
     Dates: start: 2011, end: 201307
  4. DURAGESIC [Suspect]
     Indication: BACK INJURY
     Route: 062
     Dates: start: 201307

REACTIONS (9)
  - Product quality issue [Not Recovered/Not Resolved]
  - Dermatitis contact [Unknown]
  - Wrong technique in drug usage process [Unknown]
  - Therapeutic response decreased [Unknown]
  - Wrong technique in drug usage process [Unknown]
  - Swelling [Unknown]
  - Erythema [Unknown]
  - Pruritus [Unknown]
  - Product quality issue [Unknown]
